FAERS Safety Report 4641390-4 (Version None)
Quarter: 2005Q2

REPORT INFORMATION
  Report Type: 
  Country: None (occurrence: None)
  Receive Date: 20050421
  Receipt Date: 20050412
  Transmission Date: 20051028
  Serious: Yes (Other)
  Sender: FDA-Public Use
  Company Number: US-GLAXOSMITHKLINE-A0553764A

PATIENT
  Age: 16 Year
  Sex: Female
  Weight: 54.5 kg

DRUGS (3)
  1. SOMINEX REGULAR STRENGTH CAPLETS [Suspect]
     Route: 048
     Dates: start: 20050411, end: 20050411
  2. ZOLOFT [Concomitant]
     Indication: DEPRESSION
     Dosage: 75MG PER DAY
     Route: 048
  3. ADDERALL 20 [Concomitant]
     Indication: ATTENTION DEFICIT/HYPERACTIVITY DISORDER

REACTIONS (4)
  - BALANCE DISORDER [None]
  - INTENTIONAL MISUSE [None]
  - NAUSEA [None]
  - VOMITING [None]
